FAERS Safety Report 19177433 (Version 1)
Quarter: 2021Q2

REPORT INFORMATION
  Report Type: Spontaneous
  Country: US (occurrence: US)
  Receive Date: 20210425
  Receipt Date: 20210425
  Transmission Date: 20210717
  Serious: No
  Sender: FDA-Public Use
  Company Number: US-009507513-2104USA001740

PATIENT
  Sex: Male

DRUGS (2)
  1. STEGLATRO [Suspect]
     Active Substance: ERTUGLIFLOZIN PIDOLATE
  2. LASIX [Concomitant]
     Active Substance: FUROSEMIDE

REACTIONS (2)
  - Blister [Recovered/Resolved]
  - Blister rupture [Recovered/Resolved]
